FAERS Safety Report 5320474-1 (Version None)
Quarter: 2007Q1

REPORT INFORMATION
  Report Type: 
  Country: None (occurrence: None)
  Receive Date: 20070220
  Receipt Date: 20061208
  Transmission Date: 20070707
  Serious: No
  Sender: FDA-Public Use
  Company Number: WAES 0612USA01543

PATIENT
  Age: 64 Year
  Sex: Female

DRUGS (4)
  1. JANUVIA [Suspect]
     Indication: DIABETES MELLITUS NON-INSULIN-DEPENDENT
     Dosage: 100 MG/DAILY/PO
     Route: 048
     Dates: start: 20061108, end: 20061206
  2. ATIVAN [Concomitant]
  3. NEXIUM [Concomitant]
  4. TOPROL-XL [Concomitant]

REACTIONS (2)
  - ANOREXIA [None]
  - NAUSEA [None]
